FAERS Safety Report 8359196-1 (Version None)
Quarter: 2012Q2

REPORT INFORMATION
  Report Type: 
  Country: None (occurrence: None)
  Receive Date: 20120510
  Receipt Date: 20120510
  Transmission Date: 20120825
  Serious: No
  Sender: FDA-Public Use
  Company Number: None

PATIENT
  Sex: Female
  Weight: 86.4 kg

DRUGS (1)
  1. ZAFIRLUKAST [Suspect]
     Indication: ASTHMA
     Dosage: 20 MG 2X DAILY ORALLY
     Route: 048
     Dates: start: 20120318

REACTIONS (2)
  - DYSPNOEA [None]
  - PRODUCT SUBSTITUTION ISSUE [None]
